FAERS Safety Report 24901155 (Version 1)
Quarter: 2025Q1

REPORT INFORMATION
  Report Type: Spontaneous
  Country: US (occurrence: US)
  Receive Date: 20250129
  Receipt Date: 20250129
  Transmission Date: 20250409
  Serious: No
  Sender: ANI
  Company Number: US-ANIPHARMA-2025-US-003816

PATIENT
  Sex: Female

DRUGS (1)
  1. TERBUTALINE SULFATE [Suspect]
     Active Substance: TERBUTALINE SULFATE
     Indication: Premature labour
     Dates: start: 199706

REACTIONS (4)
  - Premature delivery [Recovered/Resolved]
  - Product use in unapproved indication [Recovered/Resolved]
  - Maternal exposure during pregnancy [Recovered/Resolved]
  - Contraindicated product administered [Recovered/Resolved]

NARRATIVE: CASE EVENT DATE: 19970601
